FAERS Safety Report 9772163 (Version 1)
Quarter: 2013Q4

REPORT INFORMATION
  Report Type: Spontaneous
  Country: US (occurrence: None)
  Receive Date: 20131007
  Receipt Date: 20131007
  Transmission Date: 20140711
  Serious: Yes (Other)
  Sender: FDA-Public Use
  Company Number: KAMADA LTD MFR # 42318

PATIENT
  Age: 55 Year
  Sex: Female

DRUGS (5)
  1. GLASSIA [Suspect]
     Indication: ALPHA-1 ANTI-TRYPSIN DEFICIENCY
     Route: 042
  2. XOPENEX [Concomitant]
  3. UNSPECIFIED NEBULIZER TREATMENTS [Concomitant]
  4. FORADIL INHALER [Concomitant]
  5. PROAIR [Concomitant]

REACTIONS (5)
  - Pruritus [None]
  - Nausea [None]
  - Chest pain [None]
  - Diarrhoea [None]
  - Bronchospasm [None]
